FAERS Safety Report 13115880 (Version 8)
Quarter: 2018Q2

REPORT INFORMATION
  Report Type: Report from Study
  Country: FR (occurrence: FR)
  Receive Date: 20170115
  Receipt Date: 20180613
  Transmission Date: 20180711
  Serious: Yes (Hospitalization, Other)
  Sender: FDA-Public Use
  Company Number: FR-BRISTOL-MYERS SQUIBB COMPANY-BMS-2017-001280

PATIENT
  Age: 42 Year
  Sex: Male

DRUGS (14)
  1. OXYCODONE [Concomitant]
     Active Substance: OXYCODONE
     Indication: PRODUCT USED FOR UNKNOWN INDICATION
     Dosage: 10 MG, BID
     Route: 065
  2. PULMOZYME [Concomitant]
     Active Substance: DORNASE ALFA
     Indication: PRODUCT USED FOR UNKNOWN INDICATION
     Dosage: UNK
     Route: 065
  3. HUMALOG [Concomitant]
     Active Substance: INSULIN LISPRO
     Indication: PRODUCT USED FOR UNKNOWN INDICATION
     Dosage: 1 DF, UNK
     Route: 065
  4. LANTUS [Concomitant]
     Active Substance: INSULIN GLARGINE
     Indication: PRODUCT USED FOR UNKNOWN INDICATION
     Dosage: 12 IU, UNK
     Route: 065
  5. AMPICILLIN [Concomitant]
     Active Substance: AMPICILLIN
     Indication: PRODUCT USED FOR UNKNOWN INDICATION
     Route: 065
  6. ROCEPHINE [Concomitant]
     Active Substance: CEFTRIAXONE SODIUM
     Indication: PRODUCT USED FOR UNKNOWN INDICATION
     Dosage: 2 G, QD
     Route: 065
  7. NIVOLUMAB [Suspect]
     Active Substance: NIVOLUMAB
     Indication: LUNG NEOPLASM MALIGNANT
     Dosage: 170 MG, Q2WK
     Route: 042
     Dates: start: 20161219, end: 20180309
  8. DOLIPRANE [Concomitant]
     Active Substance: ACETAMINOPHEN
     Indication: PRODUCT USED FOR UNKNOWN INDICATION
     Dosage: 500 MG, PRN
     Route: 065
  9. ORBENINE [Concomitant]
     Active Substance: CLOXACILLIN SODIUM
     Indication: PRODUCT USED FOR UNKNOWN INDICATION
     Dosage: 500 MG, Q4H DURING 14 DAYS
     Route: 065
  10. CREON [Concomitant]
     Active Substance: PANCRELIPASE AMYLASE\PANCRELIPASE LIPASE\PANCRELIPASE PROTEASE
     Indication: PRODUCT USED FOR UNKNOWN INDICATION
     Dosage: UNK UNK, TID
     Route: 065
  11. FRAGMINE [Concomitant]
     Active Substance: DALTEPARIN SODIUM
     Indication: PRODUCT USED FOR UNKNOWN INDICATION
     Dosage: 10000 IU, QD(1 SYRINGE PER DAY DURING 28 DAYS)
     Route: 065
  12. LOW MOLECULAR WEIGHT HEPARIN [Concomitant]
     Active Substance: UNSPECIFIED INGREDIENT
     Indication: PRODUCT USED FOR UNKNOWN INDICATION
     Route: 065
  13. ELIQUIS [Concomitant]
     Active Substance: APIXABAN
     Indication: PRODUCT USED FOR UNKNOWN INDICATION
     Dosage: 2.5 MG, BID
     Route: 065
  14. OXYCONTIN [Concomitant]
     Active Substance: OXYCODONE HYDROCHLORIDE
     Indication: PRODUCT USED FOR UNKNOWN INDICATION
     Route: 065

REACTIONS (14)
  - Malignant neoplasm progression [Not Recovered/Not Resolved]
  - Device related thrombosis [Recovering/Resolving]
  - Cystic fibrosis [Recovering/Resolving]
  - Staphylococcal infection [Unknown]
  - Hypertrophic osteoarthropathy [Not Recovered/Not Resolved]
  - Haemophilus infection [Unknown]
  - Pruritus [Recovering/Resolving]
  - Respiratory distress [Recovering/Resolving]
  - Weight decreased [Not Recovered/Not Resolved]
  - Diabetes mellitus [Recovering/Resolving]
  - Dry skin [Unknown]
  - Urticaria [Recovering/Resolving]
  - Lung infection [Recovering/Resolving]
  - Haemoptysis [Unknown]

NARRATIVE: CASE EVENT DATE: 20170102
